FAERS Safety Report 8807043 (Version 1)
Quarter: 2012Q4

REPORT INFORMATION
  Report Type: 
  Country: US (occurrence: US)
  Receive Date: 20120925
  Receipt Date: 20120925
  Transmission Date: 20130627
  Serious: Yes (Other)
  Sender: FDA-Public Use
  Company Number: US-JNJFOC-20120910431

PATIENT
  Sex: Female

DRUGS (2)
  1. ROGAINE UNSPECIFIED INGREDIENT [Suspect]
     Route: 061
  2. ROGAINE UNSPECIFIED INGREDIENT [Suspect]
     Indication: PRODUCT USED FOR UNKNOWN INDICATION
     Route: 061

REACTIONS (1)
  - Breast cancer [Unknown]
